FAERS Safety Report 8105702-1 (Version None)
Quarter: 2012Q1

REPORT INFORMATION
  Report Type: 
  Country: None (occurrence: None)
  Receive Date: 20120201
  Receipt Date: 20120129
  Transmission Date: 20120608
  Serious: No
  Sender: FDA-Public Use
  Company Number: US-BAYER-2012-010067

PATIENT
  Sex: Female

DRUGS (4)
  1. ALEVE (CAPLET) [Suspect]
     Indication: PAIN IN EXTREMITY
  2. IBUPROFEN (ADVIL) [Concomitant]
     Indication: ARTHRALGIA
  3. IBUPROFEN (ADVIL) [Concomitant]
     Indication: PAIN IN EXTREMITY
  4. ALEVE (CAPLET) [Suspect]
     Indication: ARTHRALGIA
     Route: 048

REACTIONS (1)
  - PAIN [None]
